FAERS Safety Report 4579256-0 (Version None)
Quarter: 2005Q1

REPORT INFORMATION
  Report Type: 
  Country: None (occurrence: None)
  Receive Date: 20050210
  Receipt Date: 20050210
  Transmission Date: 20050727
  Serious: No
  Sender: FDA-Public Use
  Company Number: None

PATIENT
  Sex: Female
  Weight: 64.8 kg

DRUGS (8)
  1. RITUXIMAB [Suspect]
     Dosage: CYCLE = 21 DAYS, MAXIMIUM OF 6 CYCLES
     Dates: start: 20041217
  2. ETOPOSIDE [Suspect]
     Dosage: 50 MG/M2/24 HOURS CIV BEGINNING ON DAY 1 X 4 DAYS
  3. DOXORUBICIN HCL [Suspect]
     Dosage: 10 MG/M2/24 HOURS CIV BEGINNING ON DAY 1 X 4 DAYS
  4. VINCRISTINE [Suspect]
     Dosage: 0.4 MG/M2/24 HOURS CIV BEGINNING ON DAY 1 X 4 DAYS
  5. PREDNISONE [Suspect]
     Dosage: 60 MG/M2/DAY PO ON DAY 1-5
     Route: 048
  6. CYCLOPHOSPHAMIDE [Suspect]
     Dosage: 375 MG /M2 IV OVER 1 HOUR ON DAY5
     Route: 042
  7. NEUPOGEN [Suspect]
     Dosage: 5 UG/KG SC QD BEGINNING ON DAY 6 X 10 DAYS
     Route: 058
  8. RITUXIMAB [Suspect]
     Dosage: 375 MG /M2 IV WEEKLY X 6 BEGINNING 28 DAYS AFTER LAST CYCLE OF EPOCH
     Route: 042

REACTIONS (6)
  - CLOSTRIDIUM COLITIS [None]
  - HEPATIC FAILURE [None]
  - NEUTROPENIA [None]
  - RENAL FAILURE ACUTE [None]
  - RESPIRATORY FAILURE [None]
  - SEPTIC SHOCK [None]
